FAERS Safety Report 18886444 (Version 1)
Quarter: 2021Q1

REPORT INFORMATION
  Report Type: Spontaneous
  Country: IN (occurrence: IN)
  Receive Date: 20210212
  Receipt Date: 20210212
  Transmission Date: 20210420
  Serious: Yes (Death, Other)
  Sender: FDA-Public Use
  Company Number: IN-TORRENT-00002746

PATIENT
  Age: 60 Year
  Sex: Male

DRUGS (1)
  1. CARBAMAZEPINE. [Suspect]
     Active Substance: CARBAMAZEPINE
     Indication: PAIN
     Dosage: UNKNOWN

REACTIONS (3)
  - Acute respiratory distress syndrome [Fatal]
  - Drug reaction with eosinophilia and systemic symptoms [Unknown]
  - Off label use [Unknown]
